FAERS Safety Report 21614917 (Version 1)
Quarter: 2022Q4

REPORT INFORMATION
  Report Type: Spontaneous
  Country: KR (occurrence: KR)
  Receive Date: 20221118
  Receipt Date: 20221118
  Transmission Date: 20230113
  Serious: Yes (Other)
  Sender: FDA-Public Use
  Company Number: KR-009507513-2211KOR005760

PATIENT
  Age: 40 Year
  Sex: Male
  Weight: 73.5 kg

DRUGS (1)
  1. PREVYMIS [Suspect]
     Active Substance: LETERMOVIR
     Indication: Antiviral prophylaxis
     Dosage: STRENGTH 480MG, ONCE DAILY
     Route: 048
     Dates: start: 20220610, end: 20220701

REACTIONS (1)
  - Pneumonia cytomegaloviral [Unknown]

NARRATIVE: CASE EVENT DATE: 20220802
